FAERS Safety Report 14947746 (Version 2)
Quarter: 2018Q2

REPORT INFORMATION
  Report Type: Report from Study
  Country: US (occurrence: US)
  Receive Date: 20180529
  Receipt Date: 20180613
  Transmission Date: 20180711
  Serious: Yes (Hospitalization)
  Sender: FDA-Public Use
  Company Number: US-BAYER-2018-083460

PATIENT
  Age: 65 Year
  Sex: Male

DRUGS (1)
  1. NEXAVAR [Suspect]
     Active Substance: SORAFENIB
     Indication: HEPATOCELLULAR CARCINOMA
     Dosage: 200 MG, BID
     Route: 048
     Dates: start: 20180425

REACTIONS (10)
  - Somnolence [None]
  - Weight increased [None]
  - Nausea [None]
  - Vomiting [None]
  - Off label use [None]
  - Diarrhoea [Recovered/Resolved]
  - Enterocolitis infectious [Recovered/Resolved]
  - Urinary tract infection [None]
  - Vomiting [Recovered/Resolved]
  - Blood urine present [None]

NARRATIVE: CASE EVENT DATE: 2018
